FAERS Safety Report 6323068-4 (Version None)
Quarter: 2009Q3

REPORT INFORMATION
  Report Type: 
  Country: None (occurrence: None)
  Receive Date: 20090824
  Receipt Date: 20090320
  Transmission Date: 20100115
  Serious: No
  Sender: FDA-Public Use
  Company Number: US-ABBOTT-09P-163-0563787-00

PATIENT
  Sex: Female
  Weight: 79.45 kg

DRUGS (5)
  1. NIASPAN [Suspect]
     Indication: BLOOD CHOLESTEROL INCREASED
     Route: 048
     Dates: start: 20081101, end: 20081201
  2. NIASPAN [Suspect]
     Route: 048
     Dates: start: 20080601, end: 20081001
  3. NIASPAN [Suspect]
     Route: 048
     Dates: start: 20081001, end: 20081101
  4. ASPIRIN [Concomitant]
     Indication: DRUG USE FOR UNKNOWN INDICATION
  5. M.V.I. [Concomitant]
     Indication: DRUG USE FOR UNKNOWN INDICATION
     Route: 048

REACTIONS (2)
  - CHROMATURIA [None]
  - TREMOR [None]
